FAERS Safety Report 9706224 (Version 3)
Quarter: 2013Q4

REPORT INFORMATION
  Report Type: Report from Study
  Country: US (occurrence: US)
  Receive Date: 20131125
  Receipt Date: 20131128
  Transmission Date: 20140711
  Serious: Yes (Hospitalization)
  Sender: FDA-Public Use
  Company Number: US-ROCHE-1271181

PATIENT
  Age: 68 Year
  Sex: Male

DRUGS (3)
  1. LUCENTIS [Suspect]
     Indication: RETINAL VASCULAR DISORDER
     Dosage: RIGHT EYE
     Route: 065
     Dates: end: 201305
  2. SOTALOL [Concomitant]
  3. COUMADIN [Concomitant]

REACTIONS (7)
  - Cerebrovascular accident [Recovered/Resolved]
  - Nasopharyngitis [Recovered/Resolved]
  - Wound [Recovered/Resolved]
  - Thrombosis [Recovering/Resolving]
  - Erythema [Not Recovered/Not Resolved]
  - Sensory loss [Recovered/Resolved]
  - Drug ineffective [Unknown]
